FAERS Safety Report 4503766-5 (Version None)
Quarter: 2004Q3

REPORT INFORMATION
  Report Type: 
  Country: None (occurrence: None)
  Receive Date: 20040928
  Receipt Date: 20040615
  Transmission Date: 20050211
  Serious: No
  Sender: FDA-Public Use
  Company Number: 04P-163-0263757-00

PATIENT
  Age: 73 Year
  Sex: Female
  Weight: 68.0396 kg

DRUGS (8)
  1. HUMIRA [Suspect]
     Indication: RHEUMATOID ARTHRITIS
     Dosage: 40 MG, 1 IN 2 WK, SUBCUTANEOUS
     Route: 058
     Dates: start: 20031107
  2. ACETAMINOPHEN W/ CODEINE [Concomitant]
  3. OXYCONTIN [Concomitant]
  4. FOLIC ACID [Concomitant]
  5. ROSIGLITAZONE MALEATE [Concomitant]
  6. LEVOTHYROXINE SODIUM [Concomitant]
  7. METOPROLOL SUCCINATE [Concomitant]
  8. FENOFIBRATE [Concomitant]

REACTIONS (2)
  - ALOPECIA [None]
  - HAIR COLOUR CHANGES [None]
